FAERS Safety Report 23835906 (Version 1)
Quarter: 2024Q2

REPORT INFORMATION
  Report Type: Report from Study
  Country: US (occurrence: US)
  Receive Date: 20240509
  Receipt Date: 20240509
  Transmission Date: 20240715
  Serious: Yes (Hospitalization)
  Sender: FDA-Public Use
  Company Number: US-MYLANLABS-2023M1084081

PATIENT
  Age: 31 Year
  Sex: Female
  Weight: 40 kg

DRUGS (3)
  1. PREGABALIN [Suspect]
     Active Substance: PREGABALIN
     Indication: Pain
     Dosage: 100 MILLIGRAM, TID (THREE TIMES A DAY)
     Route: 065
     Dates: start: 20121023
  2. PREGABALIN [Suspect]
     Active Substance: PREGABALIN
     Dosage: 300 MILLIGRAM, QD
     Route: 065
     Dates: start: 20121023
  3. LEVETIRACETAM [Suspect]
     Active Substance: LEVETIRACETAM
     Indication: Pain
     Dosage: 100 MILLIGRAM, BID
     Route: 065

REACTIONS (7)
  - Structural brain disorder [Not Recovered/Not Resolved]
  - Exposure to radiation [Recovered/Resolved]
  - Adverse drug reaction [Unknown]
  - Thinking abnormal [Not Recovered/Not Resolved]
  - Drug withdrawal syndrome [Not Recovered/Not Resolved]
  - Cold sweat [Not Recovered/Not Resolved]
  - Intentional dose omission [Unknown]

NARRATIVE: CASE EVENT DATE: 20230101
